FAERS Safety Report 7847710 (Version 2)
Quarter: 2013Q1

REPORT INFORMATION
  Report Type: Report from Study
  Country: IT (occurrence: IT)
  Receive Date: 20110309
  Receipt Date: 20130226
  Transmission Date: 20140127
  Serious: Yes (Death, Other)
  Sender: FDA-Public Use
  Company Number: PHHY2011IT18790

PATIENT
  Age: 79 Year
  Sex: Male
  Weight: 74 kg

DRUGS (5)
  1. CERTICAN [Suspect]
     Dosage: 1 MG/DAY
     Route: 048
     Dates: start: 20070830
  2. CERTICAN [Suspect]
     Dosage: 1 MG
     Route: 048
     Dates: start: 20071218, end: 20110217
  3. TORVAST [Concomitant]
     Indication: BLOOD CHOLESTEROL INCREASED
     Dosage: 20 MG
     Dates: start: 20070919
  4. LOBIVON [Concomitant]
     Indication: HYPERTENSION
     Dosage: 2.5 MG
     Dates: start: 20071107
  5. ANTRA [Concomitant]
     Indication: GASTRIC DISORDER
     Dosage: 20 MG
     Dates: start: 20070830

REACTIONS (2)
  - Cachexia [Fatal]
  - Lung neoplasm malignant [Unknown]
